FAERS Safety Report 5428355-X (Version None)
Quarter: 2007Q3

REPORT INFORMATION
  Report Type: 
  Country: None (occurrence: None)
  Receive Date: 20070731
  Receipt Date: 20070409
  Transmission Date: 20080115
  Serious: No
  Sender: FDA-Public Use
  Company Number: US200704002020

PATIENT
  Age: 61 Year
  Sex: Female

DRUGS (4)
  1. BYETTA [Suspect]
     Indication: TYPE 2 DIABETES MELLITUS
     Dosage: 5 UG, 2/D, SUBCUTANEOUS ;
     Route: 058
     Dates: start: 20070216, end: 20070308
  2. BYETTA [Concomitant]
     Indication: DIABETES MELLITUS
     Dosage: 10 UG 2/D SUBCUTANEOUS
     Route: 058
     Dates: start: 20070309
  3. GLUCOPHAGE [Concomitant]
  4. PRANDIN         (DEFLSZACORT) [Concomitant]

REACTIONS (2)
  - BLOOD GLUCOSE INCREASED [None]
  - DRUG INEFFECTIVE [None]
